FAERS Safety Report 5213159-3 (Version None)
Quarter: 2007Q1

REPORT INFORMATION
  Report Type: 
  Country: None (occurrence: None)
  Receive Date: 20070119
  Receipt Date: 20070117
  Transmission Date: 20070707
  Serious: Yes (Other)
  Sender: FDA-Public Use
  Company Number: US-GLAXOSMITHKLINE-A0624787A

PATIENT
  Age: 50 Year
  Sex: Female

DRUGS (1)
  1. LAMICTAL [Suspect]
     Route: 048
     Dates: start: 20020101

REACTIONS (5)
  - BLINDNESS [None]
  - CATARACT [None]
  - IMPAIRED DRIVING ABILITY [None]
  - PHOTOSENSITIVITY REACTION [None]
  - VISION BLURRED [None]
